FAERS Safety Report 9478273 (Version 2)
Quarter: 2013Q3

REPORT INFORMATION
  Report Type: Spontaneous
  Country: FR (occurrence: None)
  Receive Date: 20130821
  Receipt Date: 20130828
  Transmission Date: 20140515
  Serious: Yes (Death)
  Sender: FDA-Public Use
  Company Number: 2013-002598

PATIENT
  Age: 78 Year
  Sex: Female

DRUGS (15)
  1. ACTONEL [Suspect]
     Route: 048
  2. MIANSERINE [Suspect]
     Route: 048
     Dates: start: 20121205
  3. TEMESTA [Suspect]
     Route: 048
  4. IXPRIM [Suspect]
     Dosage: 37.5 MG / 325 MG
     Route: 048
     Dates: start: 20120111
  5. OLMETEC [Suspect]
     Route: 048
  6. VASTAREL [Suspect]
     Route: 048
  7. CARTEOL LP 2% COLLYRE A LIBERATION PROLONGEE [Suspect]
     Route: 047
  8. CACIT D3 (CALCIUM CARBONATE, COLECALCIFEROL) [Concomitant]
  9. XALATAN (LANTOPROST) [Concomitant]
  10. ARTELAC (HYPROMELLOSE) [Concomitant]
  11. DOLIPRANE (PARACETAMOL) [Concomitant]
  12. PROCTOLOG (RUSCOGENIN, TRIMEBUTINE) [Concomitant]
  13. DIFFU K (POTASSIUM CHLORIDE) [Concomitant]
  14. TOPALGIC [Suspect]
     Route: 048
  15. CORTANCYL (PREDNISONE) [Suspect]
     Dates: start: 20110125

REACTIONS (6)
  - Completed suicide [None]
  - Asphyxia [None]
  - Depression [None]
  - Glaucoma [None]
  - Visual acuity reduced [None]
  - Disease progression [None]
